FAERS Safety Report 10068499 (Version 1)
Quarter: 2014Q2

REPORT INFORMATION
  Report Type: Spontaneous
  Country: NL (occurrence: NL)
  Receive Date: 20140409
  Receipt Date: 20140409
  Transmission Date: 20141212
  Serious: Yes (Other)
  Sender: FDA-Public Use
  Company Number: NL-PFIZER INC-2014097413

PATIENT
  Age: 60 Year
  Sex: Male

DRUGS (5)
  1. VIAGRA [Suspect]
     Indication: ERECTILE DYSFUNCTION
     Dosage: UNK
     Dates: start: 2013, end: 2014
  2. ACETYLSALICYLIC ACID [Concomitant]
     Dosage: 80 MG, 1X/DAY
  3. ATORVASTATIN [Concomitant]
     Dosage: UNK
  4. METOPROLOL [Concomitant]
     Dosage: UNK
  5. OMEPRAZOL [Concomitant]
     Dosage: UNK

REACTIONS (1)
  - Haemoptysis [Recovered/Resolved]
